FAERS Safety Report 21018844 (Version 1)
Quarter: 2022Q2

REPORT INFORMATION
  Report Type: Spontaneous
  Country: DE (occurrence: DE)
  Receive Date: 20220628
  Receipt Date: 20220628
  Transmission Date: 20220720
  Serious: Yes (Other)
  Sender: FDA-Public Use
  Company Number: DE-JNJFOC-20220639016

PATIENT
  Age: 31 Year
  Sex: Female

DRUGS (2)
  1. STELARA [Suspect]
     Active Substance: USTEKINUMAB
     Indication: Crohn^s disease
     Route: 058
     Dates: start: 2018
  2. CYCLOSPORINE [Concomitant]
     Active Substance: CYCLOSPORINE

REACTIONS (5)
  - Anal abscess [Unknown]
  - Pyoderma gangrenosum [Unknown]
  - Colectomy [Unknown]
  - Stomal hernia [Unknown]
  - Drug ineffective [Unknown]
